FAERS Safety Report 6374403-2 (Version None)
Quarter: 2009Q3

REPORT INFORMATION
  Report Type: 
  Country: None (occurrence: None)
  Receive Date: 20090924
  Receipt Date: 20090911
  Transmission Date: 20100115
  Serious: No
  Sender: FDA-Public Use
  Company Number: US-B.I. PHARMACEUTICALS,INC./RIDGEFIELD-2009-BP-10812BP

PATIENT
  Sex: Female
  Weight: 34.02 kg

DRUGS (12)
  1. SPIRIVA [Suspect]
     Indication: CHRONIC OBSTRUCTIVE PULMONARY DISEASE
     Dosage: 18 MCG
     Route: 055
     Dates: start: 20060101
  2. BUSPIRONE HCL [Suspect]
     Indication: PALPITATIONS
     Dosage: 5 MG
     Route: 048
     Dates: start: 20090301
  3. BUSPIRONE HCL [Suspect]
     Indication: ANXIETY
  4. BUSPIRONE HCL [Suspect]
     Indication: NERVOUSNESS
  5. PRIMIDINE [Suspect]
     Indication: GLAUCOMA
  6. ATIVAN [Concomitant]
     Indication: PALPITATIONS
     Route: 048
     Dates: start: 20040101
  7. ATIVAN [Concomitant]
     Indication: ANXIETY
  8. ATIVAN [Concomitant]
     Indication: NERVOUSNESS
  9. CIMETIDINE [Concomitant]
     Indication: PROPHYLAXIS AGAINST GASTROINTESTINAL ULCER
     Dosage: 800 MG
     Route: 048
     Dates: start: 19990101
  10. CALCIUM 500MG + VIT. D [Concomitant]
     Indication: OSTEOPOROSIS
     Route: 048
     Dates: start: 20090101
  11. CLARITIN [Concomitant]
     Indication: HYPERSENSITIVITY
     Route: 048
     Dates: start: 20020101
  12. EXTRA STRENGTH TYLENOL [Concomitant]
     Indication: ARTHRITIS
     Dosage: 4000 MG
     Route: 048
     Dates: start: 19990101

REACTIONS (6)
  - CARDIOMEGALY [None]
  - DRUG INEFFECTIVE [None]
  - GLAUCOMA [None]
  - MACULAR DEGENERATION [None]
  - OCULAR HYPERAEMIA [None]
  - PALPITATIONS [None]
